FAERS Safety Report 8372301-6 (Version None)
Quarter: 2012Q2

REPORT INFORMATION
  Report Type: 
  Country: None (occurrence: None)
  Receive Date: 20120517
  Receipt Date: 20120508
  Transmission Date: 20120825
  Serious: Yes (Life-Threatening, Hospitalization)
  Sender: FDA-Public Use
  Company Number: 2012MA006042

PATIENT
  Age: 48 Year
  Sex: Female

DRUGS (5)
  1. NEXIUM [Concomitant]
  2. TENORMIN [Concomitant]
  3. NOZINAN (NO PREF. NAME) [Suspect]
     Dosage: 5 MG;QD;PO
     Route: 048
  4. VENLAFAXINE HCL [Suspect]
     Indication: DEPRESSION
     Dosage: 150 MG;QD;PO
     Route: 048
     Dates: end: 20120413
  5. INSULATARD NPH HUMAN [Concomitant]

REACTIONS (5)
  - DRUG INTERACTION [None]
  - TORSADE DE POINTES [None]
  - VENTRICULAR TACHYCARDIA [None]
  - CARDIAC ARREST [None]
  - VENTRICULAR FIBRILLATION [None]
